FAERS Safety Report 15826274 (Version 1)
Quarter: 2019Q1

REPORT INFORMATION
  Report Type: Spontaneous
  Country: GB (occurrence: GB)
  Receive Date: 20190115
  Receipt Date: 20190115
  Transmission Date: 20190417
  Serious: Yes (Life-Threatening)
  Sender: FDA-Public Use
  Company Number: GB-AMREGENT-20182286

PATIENT
  Age: 44 Year
  Sex: Female
  Weight: 100 kg

DRUGS (3)
  1. NAPROXEN. [Concomitant]
     Active Substance: NAPROXEN
     Dosage: 500 MG, AS REQUIRED
     Route: 048
  2. COCODAMOL [Concomitant]
     Active Substance: ACETAMINOPHEN\CODEINE PHOSPHATE
     Dosage: AS REQUIRED
     Route: 048
  3. FERINJECT [Suspect]
     Active Substance: FERRIC CARBOXYMALTOSE
     Dosage: 1 GM
     Route: 041
     Dates: start: 20181023, end: 20181023

REACTIONS (12)
  - Flushing [Unknown]
  - Rash pruritic [Unknown]
  - Tachycardia [Unknown]
  - Rash generalised [Unknown]
  - Dizziness [Unknown]
  - Nausea [Unknown]
  - Polyarthritis [Unknown]
  - Feeling abnormal [Unknown]
  - Vomiting [Unknown]
  - Headache [Unknown]
  - Arthralgia [Unknown]
  - Dry mouth [Unknown]

NARRATIVE: CASE EVENT DATE: 20181023
